FAERS Safety Report 17794913 (Version 1)
Quarter: 2020Q2

REPORT INFORMATION
  Report Type: Spontaneous
  Country: ES (occurrence: ES)
  Receive Date: 20200515
  Receipt Date: 20200515
  Transmission Date: 20200714
  Serious: Yes (Hospitalization)
  Sender: FDA-Public Use
  Company Number: ES-MYLANLABS-2020M1047824

PATIENT
  Age: 83 Year
  Sex: Male

DRUGS (4)
  1. VALSARTAN + HIDROCLOROTIAZIDA AUROBINDO [Suspect]
     Active Substance: HYDROCHLOROTHIAZIDE\VALSARTAN
     Indication: HYPERTENSION
     Dosage: UN COMPRIMIDO AL DIA
     Route: 048
     Dates: start: 20171222, end: 20200310
  2. TICAGRELOR. [Concomitant]
     Active Substance: TICAGRELOR
     Indication: CARDIOMYOPATHY
     Dosage: 90 MG AL DIA
     Route: 048
     Dates: start: 20191108
  3. ADIRO [Concomitant]
     Active Substance: ASPIRIN
     Indication: CARDIOMYOPATHY
     Dosage: UN COMPRIMIDO AL DIA
     Route: 048
     Dates: start: 20191106
  4. ATORVASTATIN [Suspect]
     Active Substance: ATORVASTATIN
     Indication: DYSLIPIDAEMIA
     Dosage: 80 MG AL DIA
     Route: 048
     Dates: start: 20191106, end: 20200310

REACTIONS (1)
  - Mixed liver injury [Recovering/Resolving]

NARRATIVE: CASE EVENT DATE: 20200305
